FAERS Safety Report 6329350-9 (Version None)
Quarter: 2009Q3

REPORT INFORMATION
  Report Type: 
  Country: None (occurrence: None)
  Receive Date: 20090818
  Receipt Date: 20090519
  Transmission Date: 20100115
  Serious: No
  Sender: FDA-Public Use
  Company Number: WAES 0905USA02575

PATIENT
  Age: 50 Year
  Sex: Male

DRUGS (3)
  1. JANUVIA [Suspect]
     Dosage: PO
     Route: 048
  2. ANTIMICROBIAL [Concomitant]
  3. LISINOPRIL [Concomitant]

REACTIONS (3)
  - ADVERSE REACTION [None]
  - ANGIOEDEMA [None]
  - LIP SWELLING [None]
